FAERS Safety Report 6580259-5 (Version None)
Quarter: 2010Q1

REPORT INFORMATION
  Report Type: 
  Country: None (occurrence: None)
  Receive Date: 20100212
  Receipt Date: 20100125
  Transmission Date: 20100710
  Serious: No
  Sender: FDA-Public Use
  Company Number: US-BAYER-201012894NA

PATIENT
  Age: 77 Year
  Sex: Female

DRUGS (8)
  1. MAGNEVIST [Suspect]
     Indication: NUCLEAR MAGNETIC RESONANCE IMAGING BRAIN
     Dosage: AS USED: 10 ML
     Dates: start: 20100123, end: 20100123
  2. METFORMIN HCL [Concomitant]
  3. LEXAPRO [Concomitant]
  4. SULINDAC [Concomitant]
  5. NAMENDA [Concomitant]
  6. FEMARA [Concomitant]
  7. ALENDRONATE SODIUM [Concomitant]
  8. CALCIUM BOOT [Concomitant]

REACTIONS (2)
  - NAUSEA [None]
  - VOMITING [None]
